FAERS Safety Report 14740751 (Version 1)
Quarter: 2018Q2

REPORT INFORMATION
  Report Type: Spontaneous
  Country: US (occurrence: US)
  Receive Date: 20180404
  Receipt Date: 20180404
  Transmission Date: 20180711
  Serious: Yes (Other)
  Sender: FDA-Public Use
  Company Number: None

PATIENT
  Age: 48 Year
  Sex: Female
  Weight: 68.04 kg

DRUGS (2)
  1. DESVENLAFAXINE ER 50MG [Suspect]
     Active Substance: DESVENLAFAXINE
     Indication: ANXIETY DISORDER
     Dates: start: 20180404
  2. DESVENLAFAXINE ER 50MG [Suspect]
     Active Substance: DESVENLAFAXINE
     Indication: MAJOR DEPRESSION
     Route: 048
     Dates: start: 20180101

REACTIONS (4)
  - Depression [None]
  - Anxiety [None]
  - Rash [None]
  - Headache [None]

NARRATIVE: CASE EVENT DATE: 20180101
